FAERS Safety Report 6370035-0 (Version None)
Quarter: 2009Q3

REPORT INFORMATION
  Report Type: 
  Country: None (occurrence: None)
  Receive Date: 20090923
  Receipt Date: 20090715
  Transmission Date: 20100115
  Serious: Yes (Hospitalization, Other)
  Sender: FDA-Public Use
  Company Number: US-ASTRAZENECA-2005UW17274

PATIENT
  Age: 23219 Day
  Sex: Female
  Weight: 87.1 kg

DRUGS (4)
  1. SEROQUEL [Suspect]
     Indication: DEPRESSION
     Route: 048
     Dates: start: 20030508, end: 20040410
  2. LEXAPRO [Concomitant]
  3. NORVASC [Concomitant]
  4. DIOVAN [Concomitant]

REACTIONS (5)
  - CARDIAC DISORDER [None]
  - DIABETIC COMA [None]
  - DIABETIC KETOACIDOSIS [None]
  - PANCREATITIS [None]
  - TYPE 2 DIABETES MELLITUS [None]
